FAERS Safety Report 11758853 (Version 1)
Quarter: 2015Q4

REPORT INFORMATION
  Report Type: Spontaneous
  Country: US (occurrence: US)
  Receive Date: 20151120
  Receipt Date: 20151120
  Transmission Date: 20160304
  Serious: No
  Sender: FDA-Public Use
  Company Number: US-ELI_LILLY_AND_COMPANY-US201209004798

PATIENT
  Age: 62 Year
  Sex: Female

DRUGS (4)
  1. CALCIUM [Concomitant]
     Active Substance: CALCIUM
  2. FORTEO [Suspect]
     Active Substance: TERIPARATIDE
     Dosage: 20 UG, QD
     Dates: end: 20120903
  3. VITAMINS NOS [Concomitant]
     Active Substance: VITAMINS
  4. FORTEO [Suspect]
     Active Substance: TERIPARATIDE
     Indication: OSTEOPOROSIS
     Dosage: 20 UG, QD

REACTIONS (12)
  - Pain in jaw [Unknown]
  - Anxiety [Unknown]
  - Chest discomfort [Unknown]
  - Joint stiffness [Unknown]
  - Dizziness [Unknown]
  - Intentional product misuse [Unknown]
  - Dry mouth [Unknown]
  - Memory impairment [Unknown]
  - Visual impairment [Unknown]
  - Discomfort [Unknown]
  - Injection site pain [Unknown]
  - Palpitations [Unknown]

NARRATIVE: CASE EVENT DATE: 20120903
